FAERS Safety Report 18188808 (Version 1)
Quarter: 2020Q3

REPORT INFORMATION
  Report Type: Spontaneous
  Country: NL (occurrence: NL)
  Receive Date: 20200825
  Receipt Date: 20200825
  Transmission Date: 20201103
  Serious: Yes (Hospitalization, Other)
  Sender: FDA-Public Use
  Company Number: NL-PFIZER INC-2020314120

PATIENT
  Age: 74 Year
  Sex: Female

DRUGS (3)
  1. CARBOPLATIN. [Suspect]
     Active Substance: CARBOPLATIN
     Indication: NON-SMALL CELL LUNG CANCER
     Dosage: 550 MG, EVERY 3 WEEKS
     Route: 042
     Dates: start: 20200714
  2. BEVACIZUMAB. [Suspect]
     Active Substance: BEVACIZUMAB
     Indication: NON-SMALL CELL LUNG CANCER
     Dosage: 925 MG, EVERY 3 WEEKS
     Route: 042
     Dates: start: 20200714
  3. PACLITAXEL. [Suspect]
     Active Substance: PACLITAXEL
     Indication: NON-SMALL CELL LUNG CANCER
     Dosage: 330 MG, EVERY 3 WEEKS
     Route: 042
     Dates: start: 20200714

REACTIONS (5)
  - Malaise [Recovered/Resolved]
  - Platelet count decreased [Unknown]
  - Off label use [Unknown]
  - Product use in unapproved indication [Unknown]
  - White blood cell count decreased [Unknown]

NARRATIVE: CASE EVENT DATE: 20200714
